FAERS Safety Report 8622161-0 (Version None)
Quarter: 2012Q3

REPORT INFORMATION
  Report Type: 
  Country: None (occurrence: None)
  Receive Date: 20120826
  Receipt Date: 20120820
  Transmission Date: 20120928
  Serious: No
  Sender: FDA-Public Use
  Company Number: US-B.I. PHARMACEUTICALS,INC./RIDGEFIELD-2012-BP-20214BP

PATIENT
  Sex: Female

DRUGS (15)
  1. DETROL LA [Concomitant]
     Indication: BLADDER SPASM
     Dosage: 4 MG
     Route: 048
     Dates: start: 20060101
  2. HYDROCODONE BITARTRATE [Concomitant]
     Indication: PAIN
     Route: 048
     Dates: start: 20100101
  3. MELOXICAM [Concomitant]
     Indication: PAIN
     Dosage: 15 MG
     Route: 048
     Dates: start: 20120701
  4. PLAVIX [Concomitant]
     Indication: THROMBOSIS
     Dosage: 5 MG
     Route: 048
     Dates: start: 20080101
  5. SINGULAIR [Concomitant]
     Indication: CHRONIC OBSTRUCTIVE PULMONARY DISEASE
     Dosage: 10 MG
     Route: 048
     Dates: start: 20090101
  6. RANITIDINE [Concomitant]
     Indication: GASTROOESOPHAGEAL REFLUX DISEASE
     Dosage: 150 MG
     Route: 048
     Dates: start: 20070101
  7. SPIRIVA [Suspect]
     Indication: CHRONIC OBSTRUCTIVE PULMONARY DISEASE
     Dosage: 18 MCG
     Route: 055
     Dates: start: 20110101
  8. FLOVENT [Concomitant]
     Indication: CHRONIC OBSTRUCTIVE PULMONARY DISEASE
     Dosage: 4 PUF
     Route: 055
     Dates: start: 20080101
  9. LASIX [Concomitant]
     Indication: OEDEMA PERIPHERAL
     Dosage: 40 MG
     Route: 048
     Dates: start: 20110101
  10. MEDROXYPROGESTERONE [Concomitant]
     Indication: MENSTRUAL DISORDER
     Dosage: 10 MG
     Route: 048
     Dates: start: 20070101
  11. ALBUTEROL SULFATE [Concomitant]
     Indication: CHRONIC OBSTRUCTIVE PULMONARY DISEASE
     Dates: start: 20070101
  12. SOMA [Concomitant]
     Indication: PAIN
     Dates: start: 20070101
  13. FLEXERIL [Concomitant]
     Indication: MUSCLE SPASMS
     Dosage: 40 MG
     Route: 048
     Dates: start: 20020101
  14. PREDNISONE TAB [Concomitant]
     Indication: CHRONIC OBSTRUCTIVE PULMONARY DISEASE
     Dosage: 5 MG
     Route: 048
     Dates: start: 20120201
  15. CLOTRIMAZOLE AND BETAMETHASONE DIPROPIONATE [Concomitant]
     Indication: DRY SKIN
     Route: 061
     Dates: start: 20070101

REACTIONS (1)
  - SNEEZING [None]
